FAERS Safety Report 10401235 (Version 1)
Quarter: 2014Q3

REPORT INFORMATION
  Report Type: Spontaneous
  Country: US (occurrence: US)
  Receive Date: 20140822
  Receipt Date: 20140822
  Transmission Date: 20150326
  Serious: No
  Sender: FDA-Public Use
  Company Number: US-BIOGENIDEC-2014BI084071

PATIENT
  Sex: Female

DRUGS (3)
  1. COPAXONE [Concomitant]
     Active Substance: GLATIRAMER ACETATE
  2. TYSABRI [Suspect]
     Active Substance: NATALIZUMAB
     Indication: PRODUCT USED FOR UNKNOWN INDICATION
  3. TYSABRI [Concomitant]
     Active Substance: NATALIZUMAB

REACTIONS (1)
  - Malaise [Unknown]
